FAERS Safety Report 16768440 (Version 1)
Quarter: 2019Q3

REPORT INFORMATION
  Report Type: Spontaneous
  Country: GB (occurrence: GB)
  Receive Date: 20190903
  Receipt Date: 20190903
  Transmission Date: 20191005
  Serious: Yes (Other)
  Sender: FDA-Public Use
  Company Number: GB-MYLANLABS-2019M1081896

PATIENT
  Age: 85 Year
  Sex: Male
  Weight: 90 kg

DRUGS (10)
  1. SIMVASTATIN. [Concomitant]
     Active Substance: SIMVASTATIN
     Dosage: 1 DOSAGE FORM, QD (NIGHT)
     Dates: start: 20181023
  2. PARACETAMOL [Concomitant]
     Active Substance: ACETAMINOPHEN
     Dosage: 8 DOSAGE FORM, QD
     Dates: start: 20181023
  3. ALGESAL                            /00021209/ [Concomitant]
     Dosage: 3 DOSAGE FORM, QD
     Dates: start: 20181023
  4. CLOPIDOGREL [Concomitant]
     Active Substance: CLOPIDOGREL BISULFATE
     Dosage: 1 DOSAGE FORM, QD (AS ADVISED BY HOSPITAL.)
     Dates: start: 20181023
  5. LANSOPRAZOLE. [Concomitant]
     Active Substance: LANSOPRAZOLE
     Dosage: 1 DOSAGE FORM, QD
     Dates: start: 20181023
  6. LACTULOSE. [Concomitant]
     Active Substance: LACTULOSE
     Dosage: 30 MILLILITER, QD
     Dates: start: 20181023
  7. DOXYCYCLINE. [Suspect]
     Active Substance: DOXYCYCLINE
     Indication: PRODUCT USED FOR UNKNOWN INDICATION
     Dosage: 200 MILLIGRAM (TWO NOW THEN ONE DAILY)
     Dates: start: 20190304, end: 20190311
  8. ERYTHROMYCIN STEARATE [Concomitant]
     Active Substance: ERYTHROMYCIN STEARATE
     Dosage: 4 DOSAGE FORM, QD
     Dates: start: 20190305
  9. BENDROFLUMETHIAZIDE [Concomitant]
     Active Substance: BENDROFLUMETHIAZIDE
     Dosage: 1 DOSAGE FORM, QD
     Dates: start: 20181023
  10. AMLODIPINE [Concomitant]
     Active Substance: AMLODIPINE BESYLATE
     Dosage: 1 DOSAGE FORM, QD
     Dates: start: 20181023

REACTIONS (1)
  - Lip swelling [Recovered/Resolved]
